FAERS Safety Report 22299087 (Version 2)
Quarter: 2024Q2

REPORT INFORMATION
  Report Type: Spontaneous
  Country: US (occurrence: US)
  Receive Date: 20230509
  Receipt Date: 20240402
  Transmission Date: 20240716
  Serious: Yes (Hospitalization, Other)
  Sender: FDA-Public Use
  Company Number: US-PFIZER INC-PV202300081948

PATIENT
  Age: 72 Year
  Sex: Female

DRUGS (13)
  1. IBRANCE [Suspect]
     Active Substance: PALBOCICLIB
     Indication: Metastases to bone marrow
     Dosage: TAKE 1 TABLET (100 MG) BY MOUTH WITH FOOD ON DAYS 1 THROUGH 21 FOLLOWED BY 7 DAYS OFF THERAPY
     Route: 048
     Dates: start: 20200618
  2. OLANZAPINE [Concomitant]
     Active Substance: OLANZAPINE
     Dosage: UNK
  3. LISINOPRIL [Concomitant]
     Active Substance: LISINOPRIL
  4. LISINOPRIL [Concomitant]
     Active Substance: LISINOPRIL
  5. CARVEDILOL [Concomitant]
     Active Substance: CARVEDILOL
  6. CARVEDILOL [Concomitant]
     Active Substance: CARVEDILOL
  7. MORPHINE SULFATE [Concomitant]
     Active Substance: MORPHINE SULFATE
  8. LETROZOLE [Concomitant]
     Active Substance: LETROZOLE
  9. INCRUSE ELLIPTA [Concomitant]
     Active Substance: UMECLIDINIUM BROMIDE
  10. ELIQUIS [Concomitant]
     Active Substance: APIXABAN
  11. VENTOLIN HFA [Concomitant]
     Active Substance: ALBUTEROL SULFATE
  12. CLONIDINE [Concomitant]
     Active Substance: CLONIDINE
  13. NITROGLYCERIN [Concomitant]
     Active Substance: NITROGLYCERIN

REACTIONS (2)
  - Dyspnoea [Unknown]
  - Pneumonia [Unknown]
